FAERS Safety Report 5478319-5 (Version None)
Quarter: 2007Q4

REPORT INFORMATION
  Report Type: 
  Country: None (occurrence: None)
  Receive Date: 20071005
  Receipt Date: 20071002
  Transmission Date: 20080405
  Serious: Yes (Other)
  Sender: FDA-Public Use
  Company Number: B0488748A

PATIENT
  Sex: Female

DRUGS (1)
  1. NYTOL [Suspect]
     Indication: DRUG USE FOR UNKNOWN INDICATION
     Dosage: 60TAB PER DAY
     Route: 048
     Dates: start: 20010101

REACTIONS (6)
  - COGNITIVE DISORDER [None]
  - COLOUR BLINDNESS [None]
  - INDIFFERENCE [None]
  - MYDRIASIS [None]
  - SPEECH DISORDER [None]
  - THINKING ABNORMAL [None]
